FAERS Safety Report 7474989-0 (Version None)
Quarter: 2011Q2

REPORT INFORMATION
  Report Type: 
  Country: None (occurrence: None)
  Receive Date: 20110512
  Receipt Date: 20110406
  Transmission Date: 20111010
  Serious: Yes (Hospitalization, Other)
  Sender: FDA-Public Use
  Company Number: US-BAYER-201015536NA

PATIENT
  Age: 40 Year
  Sex: Female
  Weight: 77.551 kg

DRUGS (12)
  1. DROSPIRENONE AND ETHINYL ESTRADIOL [Suspect]
     Indication: PRODUCT USED FOR UNKNOWN INDICATION
     Dosage: UNK UNK, UNK
     Route: 048
     Dates: start: 20010901, end: 20090301
  2. PRINZIDE [Concomitant]
  3. ASPIRIN [Concomitant]
  4. YASMIN [Suspect]
     Indication: PRODUCT USED FOR UNKNOWN INDICATION
     Dosage: UNK UNK, UNK
     Route: 048
     Dates: start: 20010901, end: 20090329
  5. PLAVIX [Concomitant]
  6. METOPROLOL TARTRATE [Concomitant]
  7. STATIN [Concomitant]
  8. IBUPROFEN [Concomitant]
     Dosage: UNK
     Dates: start: 20050101
  9. LISINOPRIL AND HYDROCHLOROTHIAZIDE [Concomitant]
  10. DOXYCYCLINE [Concomitant]
  11. LISINOPRIL [Concomitant]
     Dosage: UNK
     Dates: start: 20080101, end: 20090101
  12. PROAIR HFA [Concomitant]

REACTIONS (3)
  - CHEST PAIN [None]
  - ACUTE CORONARY SYNDROME [None]
  - ANGINA UNSTABLE [None]
